FAERS Safety Report 5892241-1 (Version None)
Quarter: 2008Q3

REPORT INFORMATION
  Report Type: 
  Country: None (occurrence: None)
  Receive Date: 20080919
  Receipt Date: 20080911
  Transmission Date: 20090109
  Serious: Yes (Other)
  Sender: FDA-Public Use
  Company Number: CHPA2008US15326

PATIENT
  Age: 71 Year
  Sex: Female

DRUGS (3)
  1. NICOTINE [Suspect]
  2. NICOTINE [Suspect]
     Indication: SMOKING CESSATION THERAPY
     Dosage: 21 MG, QD, TRANSDERMAL
     Route: 062
     Dates: start: 20080909
  3. DRUG THERAPY NOS (DRUG THERAPY NOS) [Concomitant]

REACTIONS (5)
  - HYPOTENSION [None]
  - INCORRECT DOSE ADMINISTERED [None]
  - NICOTINE DEPENDENCE [None]
  - THROAT CANCER [None]
  - TREATMENT NONCOMPLIANCE [None]
